FAERS Safety Report 5943843-5 (Version None)
Quarter: 2008Q4

REPORT INFORMATION
  Report Type: 
  Country: None (occurrence: None)
  Receive Date: 20081106
  Receipt Date: 20081027
  Transmission Date: 20090506
  Serious: Yes (Other)
  Sender: FDA-Public Use
  Company Number: US-ELI_LILLY_AND_COMPANY-US200810006238

PATIENT
  Sex: Female

DRUGS (10)
  1. FORTEO [Suspect]
     Indication: OSTEOPOROSIS
     Dosage: 20 UG, DAILY (1/D)
     Dates: start: 20060101
  2. LEVOTHYROXINE SODIUM [Concomitant]
  3. RELAFEN [Concomitant]
  4. DARVOCET-N 100 [Concomitant]
  5. LEXAPRO [Concomitant]
  6. LIPITOR [Concomitant]
  7. PLAVIX [Concomitant]
  8. CITRACAL + D [Concomitant]
  9. FIBERCON [Concomitant]
  10. COLACE [Concomitant]

REACTIONS (5)
  - CEREBROVASCULAR ACCIDENT [None]
  - CERVICAL SPINAL STENOSIS [None]
  - FATIGUE [None]
  - PAIN [None]
  - RADICULOPATHY [None]
